FAERS Safety Report 23859002 (Version 2)
Quarter: 2024Q3

REPORT INFORMATION
  Report Type: Report from Study
  Country: JP (occurrence: JP)
  Receive Date: 20240515
  Receipt Date: 20240709
  Transmission Date: 20241017
  Serious: Yes (Death)
  Sender: ALNYLAM PHARMACEUTICALS
  Company Number: JP-ALNYLAM PHARMACEUTICALS, INC.-ALN-2023-003615

PATIENT

DRUGS (2)
  1. AMVUTTRA [Suspect]
     Active Substance: VUTRISIRAN
     Indication: Hereditary neuropathic amyloidosis
     Dosage: 25 MILLIGRAM
     Route: 058
     Dates: start: 20230208, end: 20230510
  2. VITAMINS [Concomitant]
     Active Substance: VITAMINS
     Indication: Vitamin supplementation
     Dosage: 1 GRAM/DAY
     Route: 048
     Dates: start: 20230208, end: 20230609

REACTIONS (1)
  - Cardiac failure acute [Fatal]

NARRATIVE: CASE EVENT DATE: 20230609
